FAERS Safety Report 16877172 (Version 2)
Quarter: 2019Q4

REPORT INFORMATION
  Report Type: Spontaneous
  Country: AT (occurrence: AT)
  Receive Date: 20191002
  Receipt Date: 20191004
  Transmission Date: 20200122
  Serious: Yes (Life-Threatening, Hospitalization, Other)
  Sender: FDA-Public Use
  Company Number: AT-ROCHE-2399738

PATIENT
  Age: 54 Year
  Sex: Female

DRUGS (4)
  1. ALECENSA [Suspect]
     Active Substance: ALECTINIB HYDROCHLORIDE
     Indication: LUNG NEOPLASM MALIGNANT
     Dosage: 4 DF
     Route: 048
     Dates: start: 20190708, end: 20190824
  2. PANTOLOC [PANTOPRAZOLE] [Concomitant]
     Active Substance: PANTOPRAZOLE SODIUM
     Indication: GASTRITIS
     Route: 048
  3. LENDORM [Concomitant]
     Active Substance: BROTIZOLAM
     Indication: SLEEP DISORDER
     Route: 048
  4. VERSATIS [Concomitant]
     Active Substance: LIDOCAINE
     Indication: NEURALGIA
     Route: 065

REACTIONS (5)
  - Jaundice [Not Recovered/Not Resolved]
  - Liver function test increased [Not Recovered/Not Resolved]
  - Hyperbilirubinaemia [Recovering/Resolving]
  - Drug-induced liver injury [Recovering/Resolving]
  - Abdominal pain upper [Not Recovered/Not Resolved]

NARRATIVE: CASE EVENT DATE: 20190819
